FAERS Safety Report 9826803 (Version 1)
Quarter: 2013Q4

REPORT INFORMATION
  Report Type: Spontaneous
  Country: US (occurrence: None)
  Receive Date: 20131120
  Receipt Date: 20131120
  Transmission Date: 20140711
  Serious: Yes (Hospitalization)
  Sender: FDA-Public Use
  Company Number: A-NJ2013-82116

PATIENT
  Age: 60 Year
  Sex: Male

DRUGS (5)
  1. TRACLEER [Suspect]
     Indication: PULMONARY ARTERIAL HYPERTENSION
     Route: 048
  2. VENTAVIS [Suspect]
     Indication: PULMONARY ARTERIAL HYPERTENSION
     Dosage: RESPIRATORY
     Dates: end: 201305
  3. ADCIRA(TADALAFIL) [Concomitant]
  4. LASIX(FUROSEMIDE) [Concomitant]
  5. KLOR-CON(POTASSIUM CHLORIDE) [Concomitant]

REACTIONS (2)
  - Dyspnoea [None]
  - Fluid retention [None]
